FAERS Safety Report 16790865 (Version 1)
Quarter: 2019Q3

REPORT INFORMATION
  Report Type: Spontaneous
  Country: GB (occurrence: GB)
  Receive Date: 20190910
  Receipt Date: 20190910
  Transmission Date: 20191005
  Serious: Yes (Other)
  Sender: FDA-Public Use
  Company Number: GB-MYLANLABS-2019M1084107

PATIENT
  Sex: Female

DRUGS (1)
  1. EXEMESTANE. [Suspect]
     Active Substance: EXEMESTANE
     Indication: BREAST CANCER
     Dosage: 25 MG ONCE DAILY
     Route: 065

REACTIONS (4)
  - Depression suicidal [Not Recovered/Not Resolved]
  - Disturbance in attention [Unknown]
  - Product substitution issue [Unknown]
  - Cognitive disorder [Recovered/Resolved]
